FAERS Safety Report 11094078 (Version 2)
Quarter: 2015Q2

REPORT INFORMATION
  Report Type: Spontaneous
  Country: US (occurrence: US)
  Receive Date: 20150506
  Receipt Date: 20150521
  Transmission Date: 20150821
  Serious: Yes (Other)
  Sender: FDA-Public Use
  Company Number: US-LPDUSPRD-20150276

PATIENT
  Sex: Female

DRUGS (6)
  1. VITAMIN D [Concomitant]
     Active Substance: CHOLECALCIFEROL
     Dosage: DOSE UNKNOWN, TAKES DAILY
     Route: 048
  2. POTASSIUM [Concomitant]
     Active Substance: POTASSIUM
     Dosage: DOSE NOT PROVIDED, TAKEN DAILY
     Route: 048
  3. INJECTAFER [Suspect]
     Active Substance: FERRIC CARBOXYMALTOSE
     Indication: PRODUCT USED FOR UNKNOWN INDICATION
     Dosage: ^NORMAL DOSE^ OVER 30 MINUTES
     Route: 042
     Dates: start: 20150420, end: 20150420
  4. VITAMIN B12 [Concomitant]
     Active Substance: CYANOCOBALAMIN
     Dosage: DOSE NOT PROVIDED, ADM AS NEED
     Route: 051
  5. VITAMIN B12 [Concomitant]
     Active Substance: CYANOCOBALAMIN
     Dosage: DOSE NOT PROVIDED, AS NEEDED
     Route: 060
  6. VITAMIN C [Concomitant]
     Active Substance: ASCORBIC ACID
     Dosage: DOSE NOT PROVIDED, TAKEN DAILY
     Route: 048

REACTIONS (13)
  - Inflammation [Unknown]
  - Sneezing [Unknown]
  - Nausea [Unknown]
  - Upper-airway cough syndrome [Unknown]
  - Pruritus [Unknown]
  - Facial pain [Unknown]
  - Epistaxis [Unknown]
  - Heart rate decreased [Unknown]
  - Eye swelling [Unknown]
  - Diarrhoea [Unknown]
  - Local swelling [Unknown]
  - Blood pressure increased [Unknown]
  - Throat irritation [Unknown]

NARRATIVE: CASE EVENT DATE: 20150420
